FAERS Safety Report 6465823-6 (Version None)
Quarter: 2009Q4

REPORT INFORMATION
  Report Type: 
  Country: None (occurrence: None)
  Receive Date: 20091124
  Receipt Date: 20091119
  Transmission Date: 20100525
  Serious: Yes (Life-Threatening)
  Sender: FDA-Public Use
  Company Number: 2009SP035773

PATIENT
  Age: 58 Year
  Sex: Female
  Weight: 40 kg

DRUGS (4)
  1. REMERON [Suspect]
     Indication: DEPRESSION
     Dosage: 15 MG;PO ; 30 MG;PO
     Route: 048
     Dates: start: 20091029, end: 20091106
  2. REMERON [Suspect]
     Indication: DEPRESSION
     Dosage: 15 MG;PO ; 30 MG;PO
     Route: 048
     Dates: start: 20091107, end: 20091108
  3. LUVOX [Suspect]
     Indication: DRUG USE FOR UNKNOWN INDICATION
     Dosage: 150 MG;PO
     Route: 048
     Dates: end: 20091031
  4. ANAFRANIL [Suspect]
     Indication: DRUG USE FOR UNKNOWN INDICATION
     Dosage: INDRP
     Route: 041
     Dates: start: 20091029, end: 20091108

REACTIONS (4)
  - ABNORMAL BEHAVIOUR [None]
  - BLOOD CREATINE PHOSPHOKINASE INCREASED [None]
  - LOGORRHOEA [None]
  - SEROTONIN SYNDROME [None]
